FAERS Safety Report 9513353 (Version 1)
Quarter: 2013Q1

REPORT INFORMATION
  Report Type: Spontaneous
  Country: US (occurrence: None)
  Receive Date: 20130305
  Receipt Date: 20130305
  Transmission Date: 20140127
  Serious: Yes (Other)
  Sender: FDA-Public Use
  Company Number: 163-21880-12080447

PATIENT
  Age: 71 Year
  Sex: Male
  Weight: 79.8 kg

DRUGS (7)
  1. REVLIMID [Suspect]
     Indication: PLASMA CELL MYELOMA
     Dosage: 10 MG, 21 IN 28 D, PO
     Route: 048
     Dates: start: 20120626
  2. ASPIRIN (ACETYLSALICYLIC ACID) (UNKNOWN) (ACETYLSALICYLIC ACID) [Concomitant]
  3. ALTACE (RAMIPRIL) (UNKNOWN) [Concomitant]
  4. CADUET (CADUET) (UNKNOWN)? [Concomitant]
  5. PRILOSEC (OMEPROZOLE) (UNKNOWN) [Concomitant]
  6. TOPROL XL (METOPROLOL SUCCINATE) (UNKNOWN) [Concomitant]
  7. XANAX (ALPRAZOLAM) (UNKNOWN) [Concomitant]

REACTIONS (8)
  - Balance disorder [None]
  - Gastric disorder [None]
  - Dizziness [None]
  - Fatigue [None]
  - White blood cell count decreased [None]
  - Nausea [None]
  - Constipation [None]
  - Full blood count decreased [None]
